FAERS Safety Report 7148952-3 (Version None)
Quarter: 2010Q4

REPORT INFORMATION
  Report Type: 
  Country: None (occurrence: None)
  Receive Date: 20101209
  Receipt Date: 20101207
  Transmission Date: 20110411
  Serious: Yes (Hospitalization)
  Sender: FDA-Public Use
  Company Number: B0687788A

PATIENT
  Sex: Female

DRUGS (2)
  1. CLAMOXYL [Suspect]
     Indication: TONSILLITIS
     Dosage: 1G THREE TIMES PER DAY
     Route: 048
     Dates: start: 20101111, end: 20101113
  2. IBUPROFEN [Suspect]
     Indication: TONSILLITIS
     Dosage: 1TAB THREE TIMES PER DAY
     Route: 048
     Dates: start: 20101110, end: 20101112

REACTIONS (3)
  - DRUG ERUPTION [None]
  - PRURITUS [None]
  - RASH MACULO-PAPULAR [None]
